FAERS Safety Report 6874292-3 (Version None)
Quarter: 2010Q3

REPORT INFORMATION
  Report Type: 
  Country: None (occurrence: None)
  Receive Date: 20100723
  Receipt Date: 20090519
  Transmission Date: 20110219
  Serious: Yes (Other)
  Sender: FDA-Public Use
  Company Number: US-PFIZER INC-2009205405

PATIENT
  Sex: Male
  Weight: 95.692 kg

DRUGS (12)
  1. CHANTIX [Suspect]
     Indication: SMOKING CESSATION THERAPY
     Dosage: 1 MG, 2X/DAY DAILY
     Route: 048
     Dates: start: 20080827, end: 20081114
  2. IBUPROFEN [Concomitant]
     Dosage: 600 MG, 3X/DAY AS NEEDED
  3. ASPIRIN [Concomitant]
     Dosage: 81 MG, DAILY
  4. OMEPRAZOLE [Concomitant]
     Dosage: 20 MG, DAILY
  5. TEMAZEPAM [Concomitant]
     Dosage: 30 MG, DAILY
  6. CYCLOBENZAPRINE [Concomitant]
     Dosage: 10 MG, 3X/DAY, AS NEEDED
  7. TRAMADOL [Concomitant]
     Dosage: 50 MG, TAKE 1-2 TABS Q 6HRS AS NEEDED
  8. ATRIPLA [Concomitant]
     Dosage: 1 TAB DAILY
  9. LORATADINE [Concomitant]
     Dosage: 10 MG, DAILY
  10. AZMACORT [Concomitant]
     Dosage: 2 PUFFS,  2X/DAY
  11. ALBUTEROL [Concomitant]
     Dosage: 2 PUFFS 4X/DAY AS NEEDED
  12. COMBIVENT [Concomitant]
     Dosage: 2 PUFFS 4X/DAY

REACTIONS (6)
  - ABNORMAL DREAMS [None]
  - AGITATION [None]
  - PALPITATIONS [None]
  - PRESYNCOPE [None]
  - VENTRICULAR EXTRASYSTOLES [None]
  - VIOLENCE-RELATED SYMPTOM [None]
